FAERS Safety Report 9031669 (Version 18)
Quarter: 2017Q2

REPORT INFORMATION
  Report Type: Report from Study
  Country: CA (occurrence: CA)
  Receive Date: 20130124
  Receipt Date: 20170511
  Transmission Date: 20170830
  Serious: Yes (Hospitalization, Other)
  Sender: FDA-Public Use
  Company Number: PHHY2013CA006000

PATIENT
  Age: 57 Year
  Sex: Male

DRUGS (2)
  1. SANDOSTATIN LAR DEPOT [Suspect]
     Active Substance: OCTREOTIDE ACETATE
     Indication: SMALL INTESTINE CARCINOMA
     Dosage: 30 MG, QMO (EVERY 4 WEEKS)
     Route: 030
     Dates: start: 20090812
  2. SANDOSTATIN LAR DEPOT [Suspect]
     Active Substance: OCTREOTIDE ACETATE
     Dosage: 30 MG, QMO
     Route: 030
     Dates: start: 20100814

REACTIONS (26)
  - Gallbladder pain [Unknown]
  - Blood pressure increased [Unknown]
  - Confusional state [Unknown]
  - Blood pressure systolic increased [Unknown]
  - Rhinorrhoea [Unknown]
  - Pain [Recovered/Resolved]
  - Dizziness [Unknown]
  - Product use in unapproved indication [Unknown]
  - Fall [Unknown]
  - Oropharyngeal pain [Unknown]
  - Fibula fracture [Unknown]
  - Metastases to lymph nodes [Unknown]
  - Back pain [Unknown]
  - Influenza [Recovered/Resolved]
  - Faeces discoloured [Unknown]
  - Feeling abnormal [Unknown]
  - Metastases to stomach [Unknown]
  - Viral upper respiratory tract infection [Unknown]
  - Malaise [Unknown]
  - Abdominal pain upper [Unknown]
  - Vomiting [Recovered/Resolved]
  - Metastases to liver [Unknown]
  - Metastases to small intestine [Unknown]
  - Chills [Recovered/Resolved]
  - Asthenia [Unknown]
  - Diarrhoea [Recovered/Resolved]

NARRATIVE: CASE EVENT DATE: 20090812
